FAERS Safety Report 14981099 (Version 2)
Quarter: 2018Q3

REPORT INFORMATION
  Report Type: Spontaneous
  Country: US (occurrence: US)
  Receive Date: 20180606
  Receipt Date: 20180906
  Transmission Date: 20181010
  Serious: No
  Sender: FDA-Public Use
  Company Number: US-PTC THERAPEUTICS, INC.-US-2018PTC000377

PATIENT

DRUGS (2)
  1. EMFLAZA [Suspect]
     Active Substance: DEFLAZACORT
     Indication: DUCHENNE MUSCULAR DYSTROPHY
     Dosage: 36 MG, QD
     Route: 048
     Dates: start: 20180213, end: 20180601
  2. EMFLAZA [Suspect]
     Active Substance: DEFLAZACORT
     Dosage: 36 MG, QD
     Route: 048
     Dates: start: 20180224, end: 20180601

REACTIONS (4)
  - Headache [Unknown]
  - Muscle atrophy [Unknown]
  - Weight increased [Unknown]
  - Asthenia [Unknown]

NARRATIVE: CASE EVENT DATE: 20180224
